APPROVED DRUG PRODUCT: COMPOUND 65
Active Ingredient: ASPIRIN; CAFFEINE; PROPOXYPHENE HYDROCHLORIDE
Strength: 389MG;32.4MG;65MG
Dosage Form/Route: CAPSULE;ORAL
Application: A084553 | Product #002
Applicant: ALRA LABORATORIES INC
Approved: Aug 17, 1983 | RLD: No | RS: No | Type: DISCN